FAERS Safety Report 8186715-0 (Version None)
Quarter: 2012Q1

REPORT INFORMATION
  Report Type: 
  Country: None (occurrence: None)
  Receive Date: 20120306
  Receipt Date: 20120229
  Transmission Date: 20120608
  Serious: Yes (Hospitalization)
  Sender: FDA-Public Use
  Company Number: GB-ASTELLAS-2012EU001563

PATIENT
  Age: 72 Year
  Sex: Male

DRUGS (8)
  1. METFORMIN HCL [Concomitant]
     Dosage: UNK
     Route: 065
  2. ALFUZOSIN HCL [Concomitant]
     Dosage: UNK
     Route: 065
  3. SOLIFENACIN SUCCINATE [Suspect]
     Indication: INCONTINENCE
     Dosage: 5 MG, UID/QD
     Route: 048
     Dates: start: 20120208, end: 20120214
  4. OMEPRAZOLE [Concomitant]
     Dosage: UNK
     Route: 065
  5. DEXAMETHASONE [Concomitant]
     Dosage: UNK
     Route: 065
  6. RAMIPRIL [Concomitant]
     Dosage: UNK
     Route: 065
  7. SIMVASTATIN [Concomitant]
     Dosage: UNK
     Route: 065
     Dates: start: 20061201
  8. SOLIFENACIN SUCCINATE [Suspect]
     Indication: POLLAKIURIA

REACTIONS (10)
  - AGITATION [None]
  - BLOOD CREATINE PHOSPHOKINASE INCREASED [None]
  - FALL [None]
  - DYSPNOEA [None]
  - PNEUMONIA [None]
  - CONFUSIONAL STATE [None]
  - COUGH [None]
  - MYALGIA [None]
  - ASTHENIA [None]
  - PYREXIA [None]
